FAERS Safety Report 7119708-2 (Version None)
Quarter: 2010Q4

REPORT INFORMATION
  Report Type: 
  Country: None (occurrence: None)
  Receive Date: 20101115
  Receipt Date: 20101028
  Transmission Date: 20110411
  Serious: Yes (Hospitalization)
  Sender: FDA-Public Use
  Company Number: DSA_44279_2010

PATIENT
  Sex: Female

DRUGS (6)
  1. WELLBUTRIN [Suspect]
     Indication: DEPRESSION
     Dosage: (150 MG QD ORAL)
     Route: 048
     Dates: start: 20100721, end: 20100729
  2. PLAQUENIL /00072603/ [Concomitant]
  3. ADALAT [Concomitant]
  4. SIPRALEXA /01588501/ [Concomitant]
  5. CALCICHEW [Concomitant]
  6. MEDROL [Concomitant]

REACTIONS (1)
  - TOXIC SKIN ERUPTION [None]
